FAERS Safety Report 8249834-6 (Version None)
Quarter: 2012Q1

REPORT INFORMATION
  Report Type: 
  Country: None (occurrence: None)
  Receive Date: 20120316
  Receipt Date: 20090528
  Transmission Date: 20120608
  Serious: Yes (Other)
  Sender: FDA-Public Use
  Company Number: PHEH2008US08930

PATIENT
  Sex: Female

DRUGS (9)
  1. TEKTURNA [Suspect]
     Indication: HYPERTENSION
     Dosage: 300 MG, UNK
  2. CELEBREX [Concomitant]
  3. PAROXETINE HCL [Concomitant]
  4. ATENOLOL [Suspect]
     Indication: HYPERTENSION
     Dosage: 100 MG, UNK
  5. PAROXETINE HCL [Concomitant]
  6. FUROSEMIDE [Concomitant]
  7. DIOVAN [Suspect]
     Indication: HYPERTENSION
     Dosage: 80 MG, UNK 320 MG, UNK
     Dates: end: 20080101
  8. DIOVAN [Suspect]
     Indication: HYPERTENSION
     Dosage: 80 MG, UNK 320 MG, UNK
     Dates: start: 20080101
  9. LEVOTHYROXINE SODIUM [Concomitant]

REACTIONS (3)
  - PALPITATIONS [None]
  - DRUG INEFFECTIVE [None]
  - HYPERTENSION [None]
